FAERS Safety Report 10761847 (Version 1)
Quarter: 2015Q1

REPORT INFORMATION
  Report Type: Spontaneous
  Country: TR (occurrence: TR)
  Receive Date: 20150204
  Receipt Date: 20150204
  Transmission Date: 20150721
  Serious: Yes (Hospitalization)
  Sender: FDA-Public Use
  Company Number: TR-JNJFOC-20150121843

PATIENT
  Age: 28 Year
  Sex: Female

DRUGS (1)
  1. REMICADE [Suspect]
     Active Substance: INFLIXIMAB
     Indication: RHEUMATOID ARTHRITIS
     Dosage: 1.5 YR
     Route: 042
     Dates: start: 20140530, end: 20140916

REACTIONS (2)
  - Granuloma [Not Recovered/Not Resolved]
  - Granulomatous liver disease [Not Recovered/Not Resolved]

NARRATIVE: CASE EVENT DATE: 201412
